FAERS Safety Report 13521196 (Version 2)
Quarter: 2017Q2

REPORT INFORMATION
  Report Type: Report from Study
  Country: BR (occurrence: BR)
  Receive Date: 20170508
  Receipt Date: 20170519
  Transmission Date: 20170830
  Serious: Yes (Death, Other)
  Sender: FDA-Public Use
  Company Number: BR-BEH-2017080126

PATIENT
  Age: 59 Year
  Sex: Female

DRUGS (3)
  1. ALBUMIN HUMAN (GENERIC) [Suspect]
     Active Substance: ALBUMIN HUMAN
     Dosage: THIRD DAY OF TREATMENT
     Route: 042
  2. DOBUTAMINE [Suspect]
     Active Substance: DOBUTAMINE\DOBUTAMINE HYDROCHLORIDE
     Indication: HEPATORENAL SYNDROME
     Route: 065
  3. ALBUMIN HUMAN (GENERIC) [Suspect]
     Active Substance: ALBUMIN HUMAN
     Indication: HEPATORENAL SYNDROME
     Dosage: FIRST DAY OF TREATMENT
     Route: 042

REACTIONS (2)
  - Renal impairment [Fatal]
  - Drug ineffective [Fatal]
